FAERS Safety Report 20182198 (Version 1)
Quarter: 2021Q4

REPORT INFORMATION
  Report Type: Spontaneous
  Country: DE (occurrence: DE)
  Receive Date: 20211214
  Receipt Date: 20211214
  Transmission Date: 20220303
  Serious: Yes (Other)
  Sender: FDA-Public Use
  Company Number: DE-GUERBET-DE-20210077

PATIENT
  Age: 65 Year
  Sex: Female

DRUGS (5)
  1. LIPIODOL [Suspect]
     Active Substance: ETHIODIZED OIL
     Indication: Transcatheter arterial chemoembolisation
     Route: 013
  2. EPIRUBICIN [Concomitant]
     Active Substance: EPIRUBICIN
     Indication: Transcatheter arterial chemoembolisation
     Route: 013
  3. CISPLATIN [Concomitant]
     Active Substance: CISPLATIN
     Indication: Transcatheter arterial chemoembolisation
     Route: 013
  4. ONDANSETRON [Concomitant]
     Active Substance: ONDANSETRON
     Indication: Antiemetic supportive care
     Route: 042
  5. PIRITRAMIDE [Concomitant]
     Active Substance: PIRITRAMIDE
     Indication: Analgesic therapy
     Route: 042

REACTIONS (3)
  - Sepsis [Recovered/Resolved]
  - Liver abscess [Recovered/Resolved]
  - Product use in unapproved indication [Recovered/Resolved]
